FAERS Safety Report 22362301 (Version 1)
Quarter: 2023Q2

REPORT INFORMATION
  Report Type: Spontaneous
  Country: IN (occurrence: IN)
  Receive Date: 20230524
  Receipt Date: 20230524
  Transmission Date: 20230722
  Serious: Yes (Death, Other)
  Sender: FDA-Public Use
  Company Number: IN-PFIZER INC-PV202300006765

PATIENT
  Age: 86 Year
  Sex: Female

DRUGS (2)
  1. PALBOCICLIB [Suspect]
     Active Substance: PALBOCICLIB
     Dosage: 100 MG, CYCLIC (OD 21 DAY ON 7 DAY OFF)
     Route: 048
     Dates: start: 20211111
  2. FULVESTRANT [Concomitant]
     Active Substance: FULVESTRANT
     Dosage: 500MG EVERY 28 DAYS
     Route: 030

REACTIONS (2)
  - Death [Fatal]
  - Neutropenia [Unknown]
